FAERS Safety Report 8413825-2 (Version None)
Quarter: 2012Q2

REPORT INFORMATION
  Report Type: 
  Country: None (occurrence: None)
  Receive Date: 20120605
  Receipt Date: 20120525
  Transmission Date: 20120825
  Serious: Yes (Hospitalization, Disabling, Other)
  Sender: FDA-Public Use
  Company Number: US-MERCK-1111USA03006

PATIENT
  Age: 64 Year
  Sex: Female
  Weight: 86 kg

DRUGS (6)
  1. ALLEGRA [Concomitant]
     Route: 048
  2. CLARINEX [Concomitant]
     Route: 065
     Dates: start: 20040628
  3. ALAVERT [Concomitant]
     Route: 065
     Dates: start: 20040628
  4. ALENDRONATE SODIUM [Suspect]
     Indication: OSTEOPOROSIS
     Route: 048
     Dates: start: 20100301, end: 20100701
  5. FOSAMAX [Suspect]
     Indication: OSTEOPOROSIS
     Route: 048
     Dates: start: 19970201, end: 20100701
  6. TYLENOL PM [Concomitant]
     Route: 065
     Dates: start: 20100101

REACTIONS (48)
  - HAEMORRHOIDS [None]
  - OSTEOPENIA [None]
  - NOCTURIA [None]
  - MELANOCYTIC NAEVUS [None]
  - MYALGIA [None]
  - MICTURITION URGENCY [None]
  - DIVERTICULUM [None]
  - HYPERTENSIVE NEPHROPATHY [None]
  - GALLBLADDER DISORDER [None]
  - INCREASED TENDENCY TO BRUISE [None]
  - VOMITING [None]
  - URINARY TRACT INFECTION [None]
  - PAIN IN EXTREMITY [None]
  - MUSCULAR WEAKNESS [None]
  - MUSCLE SPASMS [None]
  - RENAL FAILURE CHRONIC [None]
  - LIGAMENT SPRAIN [None]
  - MUCOSAL ATROPHY [None]
  - BASAL CELL CARCINOMA [None]
  - HYPERCHOLESTEROLAEMIA [None]
  - NAUSEA [None]
  - BENIGN BREAST NEOPLASM [None]
  - DEFORMITY [None]
  - FOOT FRACTURE [None]
  - PYURIA [None]
  - TUBULOINTERSTITIAL NEPHRITIS [None]
  - WEIGHT DECREASED [None]
  - DYSURIA [None]
  - STRESS FRACTURE [None]
  - BLOOD PRESSURE INADEQUATELY CONTROLLED [None]
  - ATROPHIC VULVOVAGINITIS [None]
  - HYPERLIPIDAEMIA [None]
  - FEMUR FRACTURE [None]
  - ANKLE FRACTURE [None]
  - PARAESTHESIA [None]
  - LACERATION [None]
  - ABASIA [None]
  - OSTEOARTHRITIS [None]
  - GASTROOESOPHAGEAL REFLUX DISEASE [None]
  - FALL [None]
  - CHEST DISCOMFORT [None]
  - INJURY [None]
  - FRACTURE DISPLACEMENT [None]
  - DYSPNOEA [None]
  - HYPERTENSION [None]
  - HYPERKALAEMIA [None]
  - POLYURIA [None]
  - DECREASED APPETITE [None]
